FAERS Safety Report 7767965-1 (Version None)
Quarter: 2011Q3

REPORT INFORMATION
  Report Type: 
  Country: None (occurrence: None)
  Receive Date: 20110922
  Receipt Date: 20110209
  Transmission Date: 20111222
  Serious: Yes (Other)
  Sender: FDA-Public Use
  Company Number: US-ASTRAZENECA-2007UW04490

PATIENT
  Age: 5353 Day
  Sex: Male
  Weight: 74.8 kg

DRUGS (17)
  1. DEPAKOTE [Concomitant]
     Dates: start: 19991114
  2. CLOZARIL [Concomitant]
     Dates: start: 19991114
  3. SEROQUEL [Suspect]
     Indication: HALLUCINATION, AUDITORY
     Dosage: 200 MG-350 MG
     Route: 048
     Dates: start: 20000901, end: 20051101
  4. SEROQUEL [Suspect]
     Indication: HALLUCINATION, VISUAL
     Dosage: 200 MG-350 MG
     Route: 048
     Dates: start: 20000901, end: 20051101
  5. SEROQUEL [Suspect]
     Indication: DEPRESSION
     Dosage: 200 MG-350 MG
     Route: 048
     Dates: start: 20000901, end: 20051101
  6. SEROQUEL [Suspect]
     Dosage: 25 TO 300 MG
     Route: 048
     Dates: start: 20050622
  7. SEROQUEL [Suspect]
     Dosage: 25 TO 300 MG
     Route: 048
     Dates: start: 20050622
  8. ZYPREXA/SYMBYAX (OLANZAPINE) [Concomitant]
     Dates: start: 19991114
  9. SEROQUEL [Suspect]
     Indication: BIPOLAR DISORDER
     Dosage: 200 MG-350 MG
     Route: 048
     Dates: start: 20000901, end: 20051101
  10. SEROQUEL [Suspect]
     Dosage: 25 TO 300 MG
     Route: 048
     Dates: start: 20050622
  11. THORAZINE [Concomitant]
     Dates: start: 20021009
  12. SEROQUEL [Suspect]
     Dosage: 25 TO 300 MG
     Route: 048
     Dates: start: 20050622
  13. REMERON [Concomitant]
     Indication: DEPRESSION
     Route: 048
     Dates: start: 20050621
  14. LITHIUM CARBONATE [Concomitant]
     Dates: start: 20011120
  15. NAVANE (THIOTHIXINE) [Concomitant]
     Dates: start: 20010619
  16. RISPERDAL [Concomitant]
     Dates: start: 19991114
  17. HALDOL [Concomitant]
     Dates: start: 20020716

REACTIONS (4)
  - TYPE 2 DIABETES MELLITUS [None]
  - AMNESIA [None]
  - DIABETES MELLITUS [None]
  - PANCREATITIS [None]
